FAERS Safety Report 6908570-6 (Version None)
Quarter: 2010Q3

REPORT INFORMATION
  Report Type: 
  Country: None (occurrence: None)
  Receive Date: 20100805
  Receipt Date: 20100728
  Transmission Date: 20110219
  Serious: Yes (Hospitalization, Other)
  Sender: FDA-Public Use
  Company Number: US-JNJFOC-20100800026

PATIENT
  Age: 71 Year
  Sex: Female
  Weight: 82.56 kg

DRUGS (9)
  1. IMODIUM A-D [Suspect]
     Route: 048
  2. IMODIUM A-D [Suspect]
     Indication: DIARRHOEA
     Route: 048
  3. OXCARBAZEPINE [Concomitant]
     Indication: EPILEPSY
     Dosage: 300MG 2, 2 TIMES A DAY AND 1 ONE TIME A DAY (5 IN TOTAL) DAILY SINCE YEARS
     Route: 065
  4. EXFORGE [Concomitant]
     Indication: HYPERTENSION
     Dosage: SINCE 1 YEAR
     Route: 065
  5. OMEPRAZOLE [Concomitant]
     Indication: GASTROOESOPHAGEAL REFLUX DISEASE
     Route: 065
  6. IBUPROFEN [Concomitant]
     Indication: ANTIINFLAMMATORY THERAPY
     Dosage: 2 TABLETS DAILY
     Route: 065
  7. HYDROXYZINE [Concomitant]
     Indication: DEPRESSION
     Dosage: 1 TABLET AT BEDTIME
     Route: 065
  8. HYDROXYZINE [Concomitant]
     Indication: ANXIETY
     Dosage: 1 TABLET AT BEDTIME
     Route: 065
  9. ZOLPIDEM [Concomitant]
     Indication: SLEEP DISORDER THERAPY
     Dosage: 1 TABLET AT BEDTIME
     Route: 065

REACTIONS (4)
  - BACTERIAL INFECTION [None]
  - DRUG INEFFECTIVE [None]
  - GASTRITIS [None]
  - RECTAL HAEMORRHAGE [None]
